FAERS Safety Report 22208613 (Version 2)
Quarter: 2023Q2

REPORT INFORMATION
  Report Type: Spontaneous
  Country: JP (occurrence: JP)
  Receive Date: 20230413
  Receipt Date: 20230426
  Transmission Date: 20230722
  Serious: Yes (Other)
  Sender: FDA-Public Use
  Company Number: JP-MOCHP-A20231168

PATIENT
  Sex: Female

DRUGS (7)
  1. ESCITALOPRAM OXALATE [Suspect]
     Active Substance: ESCITALOPRAM OXALATE
     Indication: Depression
     Dosage: 15 MG, QD
     Route: 048
  2. ESCITALOPRAM OXALATE [Suspect]
     Active Substance: ESCITALOPRAM OXALATE
     Dosage: 20 MG, QD
     Route: 048
     Dates: start: 20230328
  3. ESCITALOPRAM OXALATE [Suspect]
     Active Substance: ESCITALOPRAM OXALATE
     Dosage: 5 MG, QD
     Route: 048
     Dates: start: 202303
  4. ESCITALOPRAM OXALATE [Suspect]
     Active Substance: ESCITALOPRAM OXALATE
     Dosage: 10 MG, QD
     Route: 048
  5. LICORICE ROOT EXTRACT\RHUBARB [Concomitant]
     Active Substance: LICORICE ROOT EXTRACT\RHUBARB
     Indication: Product used for unknown indication
     Route: 048
  6. ABILIFY [Concomitant]
     Active Substance: ARIPIPRAZOLE
     Indication: Product used for unknown indication
     Route: 048
  7. OTHER ANTIALLERGIC AGENTS [Concomitant]
     Indication: Seasonal allergy

REACTIONS (3)
  - Syncope [Recovered/Resolved]
  - Eczema [Recovered/Resolved]
  - Hypotension [Recovered/Resolved]

NARRATIVE: CASE EVENT DATE: 20230401
